FAERS Safety Report 7825739-7 (Version None)
Quarter: 2011Q4

REPORT INFORMATION
  Report Type: 
  Country: None (occurrence: None)
  Receive Date: 20111019
  Receipt Date: 20111005
  Transmission Date: 20120403
  Serious: Yes (Hospitalization)
  Sender: FDA-Public Use
  Company Number: PHHO2010NL08149

PATIENT
  Sex: Male
  Weight: 84.6 kg

DRUGS (2)
  1. TACROLIMUS [Suspect]
     Indication: LIVER TRANSPLANT
     Dosage: 2 MG DAILY
     Route: 048
     Dates: start: 20081112, end: 20100530
  2. EVEROLIMUS [Suspect]
     Indication: LIVER TRANSPLANT
     Dosage: 4 MG DAILY
     Route: 048
     Dates: start: 20081112, end: 20100530

REACTIONS (4)
  - SPLENIC VEIN THROMBOSIS [None]
  - ABDOMINAL PAIN [None]
  - MESENTERIC VEIN THROMBOSIS [None]
  - PYREXIA [None]
